FAERS Safety Report 4767827-8 (Version None)
Quarter: 2005Q3

REPORT INFORMATION
  Report Type: 
  Country: None (occurrence: None)
  Receive Date: 20050913
  Receipt Date: 20050901
  Transmission Date: 20060218
  Serious: Yes (Hospitalization)
  Sender: FDA-Public Use
  Company Number: MEDI-0003620

PATIENT
  Age: 53 Year
  Sex: Male
  Weight: 86.2 kg

DRUGS (11)
  1. ETHYOL [Suspect]
     Indication: CHEMOTHERAPY
     Dosage: 500 MG, 4 IN 1 WK, SUBCUTANEOUS
     Route: 058
     Dates: start: 20050801, end: 20050815
  2. ETHYOL [Suspect]
     Indication: RADIOTHERAPY
     Dosage: 500 MG, 4 IN 1 WK, SUBCUTANEOUS
     Route: 058
     Dates: start: 20050801, end: 20050815
  3. RADIATION THERAPY [Concomitant]
  4. CHEMOTHERAPY [Concomitant]
  5. ATIVAN [Concomitant]
  6. COMPAZINE [Concomitant]
  7. ZOFRAN [Concomitant]
  8. DIFLUCAN [Concomitant]
  9. METOPROLOL TARTRATE [Concomitant]
  10. PREVACID [Concomitant]
  11. ASPIRIN [Concomitant]

REACTIONS (23)
  - AGITATION [None]
  - BLOOD GLUCOSE INCREASED [None]
  - BLOOD SODIUM DECREASED [None]
  - CAROTID ARTERY STENOSIS [None]
  - CEREBRAL ARTERY OCCLUSION [None]
  - CEREBROVASCULAR ACCIDENT [None]
  - DIARRHOEA [None]
  - DISORIENTATION [None]
  - DRY MOUTH [None]
  - DYSPHAGIA [None]
  - DYSPNOEA [None]
  - FALL [None]
  - HEAD INJURY [None]
  - HYPERTENSION [None]
  - LETHARGY [None]
  - LOSS OF CONSCIOUSNESS [None]
  - MEMORY IMPAIRMENT [None]
  - NERVOUS SYSTEM DISORDER [None]
  - NUCLEAR MAGNETIC RESONANCE IMAGING BRAIN ABNORMAL [None]
  - ORAL FUNGAL INFECTION [None]
  - PHARYNGOLARYNGEAL PAIN [None]
  - PULSE PRESSURE INCREASED [None]
  - WHITE BLOOD CELL COUNT INCREASED [None]
